FAERS Safety Report 20107018 (Version 1)
Quarter: 2021Q4

REPORT INFORMATION
  Report Type: Spontaneous
  Country: US (occurrence: None)
  Receive Date: 20211123
  Receipt Date: 20211123
  Transmission Date: 20220303
  Serious: No
  Sender: FDA-Public Use
  Company Number: None

PATIENT
  Age: 48 Year
  Sex: Female

DRUGS (1)
  1. DALFAMPRIDINE [Suspect]
     Active Substance: DALFAMPRIDINE
     Indication: Multiple sclerosis
     Dosage: FREQUENCY : TWICE A DAY;?
     Route: 048
     Dates: start: 20211119, end: 20211120

REACTIONS (6)
  - Dizziness [None]
  - Headache [None]
  - Nausea [None]
  - Photophobia [None]
  - Gait disturbance [None]
  - Heart rate irregular [None]

NARRATIVE: CASE EVENT DATE: 20211119
